FAERS Safety Report 11298884 (Version 1)
Quarter: 2015Q3

REPORT INFORMATION
  Report Type: Spontaneous
  Country: US (occurrence: US)
  Receive Date: 20150722
  Receipt Date: 20150722
  Transmission Date: 20151125
  Serious: Yes (Other)
  Sender: FDA-Public Use
  Company Number: US-ELI_LILLY_AND_COMPANY-US201111004721

PATIENT
  Sex: Female
  Weight: 52.61 kg

DRUGS (1)
  1. EVISTA [Suspect]
     Active Substance: RALOXIFENE HYDROCHLORIDE
     Dosage: UNK
     Dates: start: 2007, end: 20110915

REACTIONS (2)
  - Transient ischaemic attack [Recovered/Resolved]
  - Lacunar infarction [Unknown]

NARRATIVE: CASE EVENT DATE: 201102
